FAERS Safety Report 5633044-2 (Version None)
Quarter: 2008Q1

REPORT INFORMATION
  Report Type: 
  Country: None (occurrence: None)
  Receive Date: 20080214
  Receipt Date: 20080201
  Transmission Date: 20080703
  Serious: Yes (Other)
  Sender: FDA-Public Use
  Company Number: 2008010674

PATIENT
  Age: 55 Year
  Sex: Male

DRUGS (1)
  1. FRAGMIN [Suspect]
     Indication: THROMBOSIS PROPHYLAXIS
     Dosage: 3 UNIT DOSES, WEEKLY, INTRAVENOUS
     Route: 042
     Dates: start: 20080101, end: 20080116

REACTIONS (2)
  - DYSPONESIS [None]
  - ERYTHEMA [None]
